FAERS Safety Report 8800292 (Version 2)
Quarter: 2013Q2

REPORT INFORMATION
  Report Type: Spontaneous
  Country: US (occurrence: US)
  Receive Date: 20120921
  Receipt Date: 20130402
  Transmission Date: 20140414
  Serious: Yes (Hospitalization)
  Sender: FDA-Public Use
  Company Number: US-BIOGENIDEC-2012BI038684

PATIENT
  Age: 51 Year
  Sex: Female

DRUGS (2)
  1. AVONEX [Suspect]
     Indication: MULTIPLE SCLEROSIS
     Route: 030
     Dates: start: 20070105
  2. AVONEX [Suspect]
     Indication: MULTIPLE SCLEROSIS
     Route: 030
     Dates: start: 200908, end: 201209

REACTIONS (11)
  - Hypertension [Recovered/Resolved]
  - Burning sensation [Unknown]
  - Sticky skin [Not Recovered/Not Resolved]
  - Memory impairment [Recovered/Resolved]
  - Acne [Recovered/Resolved]
  - Vulvovaginal burning sensation [Recovered/Resolved]
  - Skin discolouration [Unknown]
  - Thyroid disorder [Unknown]
  - Arthralgia [Not Recovered/Not Resolved]
  - Influenza like illness [Recovered/Resolved]
  - Feeling hot [Not Recovered/Not Resolved]
